FAERS Safety Report 7297148-3 (Version None)
Quarter: 2011Q1

REPORT INFORMATION
  Report Type: 
  Country: None (occurrence: None)
  Receive Date: 20110216
  Receipt Date: 20110209
  Transmission Date: 20110831
  Serious: No
  Sender: FDA-Public Use
  Company Number: US-PFIZER INC-2010118486

PATIENT
  Sex: Female
  Weight: 68.027 kg

DRUGS (5)
  1. ZOLOFT [Suspect]
     Indication: IRRITABILITY
     Dosage: 100 MG, DAILY
     Dates: start: 20100801
  2. ZOLOFT [Suspect]
     Indication: INSOMNIA
  3. PRISTIQ [Suspect]
     Indication: DEPRESSED MOOD
  4. PRISTIQ [Suspect]
     Indication: MENOPAUSAL SYMPTOMS
     Dosage: 50 MG, DAILY
     Dates: start: 20100801
  5. FEXOFENADINE [Concomitant]
     Indication: HYPERSENSITIVITY
     Dosage: UNK

REACTIONS (4)
  - PYREXIA [None]
  - POOR QUALITY SLEEP [None]
  - DIZZINESS [None]
  - MALAISE [None]
